FAERS Safety Report 7822076-1 (Version None)
Quarter: 2011Q4

REPORT INFORMATION
  Report Type: 
  Country: None (occurrence: None)
  Receive Date: 20111018
  Receipt Date: 20111012
  Transmission Date: 20120403
  Serious: Yes (Other)
  Sender: FDA-Public Use
  Company Number: PHEH2011US06733

PATIENT
  Age: 27 Year
  Sex: Male
  Weight: 69.841 kg

DRUGS (2)
  1. TOBI [Suspect]
     Dosage: 300 MG, EVERY 12 HOURS IN A CYCLE OF 28 DAYS ON AND 28 DAYS OFF
     Dates: start: 20100615
  2. PULMOZYME [Concomitant]

REACTIONS (2)
  - UPPER RESPIRATORY TRACT INFECTION [None]
  - PNEUMONIA [None]
